FAERS Safety Report 6544761-4 (Version None)
Quarter: 2010Q1

REPORT INFORMATION
  Report Type: 
  Country: None (occurrence: None)
  Receive Date: 20100120
  Receipt Date: 20100120
  Transmission Date: 20100710
  Serious: No
  Sender: FDA-Public Use
  Company Number: None

PATIENT
  Age: 50 Year
  Sex: Male
  Weight: 107.9561 kg

DRUGS (1)
  1. CIPROFLAXACIN [Suspect]
     Indication: GASTROINTESTINAL INFECTION
     Dosage: 250MG BID PO
     Route: 048
     Dates: start: 20090904, end: 20090907

REACTIONS (17)
  - ARTHRALGIA [None]
  - ASTHENIA [None]
  - ATAXIA [None]
  - CACHEXIA [None]
  - DIARRHOEA [None]
  - HEADACHE [None]
  - HYPERTENSION [None]
  - MALAISE [None]
  - MUSCLE SPASMS [None]
  - MUSCULAR WEAKNESS [None]
  - MUSCULOSKELETAL STIFFNESS [None]
  - NEUROPATHY PERIPHERAL [None]
  - PAIN IN EXTREMITY [None]
  - PULMONARY EMBOLISM [None]
  - STRONGYLOIDIASIS [None]
  - TENDON DISORDER [None]
  - VISION BLURRED [None]
